FAERS Safety Report 5214401-5 (Version None)
Quarter: 2007Q1

REPORT INFORMATION
  Report Type: 
  Country: None (occurrence: None)
  Receive Date: 20070122
  Receipt Date: 20070111
  Transmission Date: 20070707
  Serious: Yes (Other)
  Sender: FDA-Public Use
  Company Number: DE-AMGEN-UK186259

PATIENT
  Age: 49 Year
  Sex: Female

DRUGS (1)
  1. MIMPARA [Suspect]
     Indication: HYPERPARATHYROIDISM SECONDARY
     Route: 065
     Dates: start: 20050601

REACTIONS (3)
  - BONE PAIN [None]
  - HUNGRY BONE SYNDROME [None]
  - HYPOPHOSPHATAEMIA [None]
